FAERS Safety Report 25246400 (Version 1)
Quarter: 2025Q2

REPORT INFORMATION
  Report Type: Spontaneous
  Country: US (occurrence: US)
  Receive Date: 20250428
  Receipt Date: 20250428
  Transmission Date: 20250717
  Serious: Yes (Hospitalization)
  Sender: INNOGENIX, LLC
  Company Number: US-Innogenix, LLC-2175738

PATIENT

DRUGS (3)
  1. PROPRANOLOL HYDROCHLORIDE [Suspect]
     Active Substance: PROPRANOLOL HYDROCHLORIDE
     Indication: Product used for unknown indication
  2. PRAZOSIN [Suspect]
     Active Substance: PRAZOSIN
  3. GABAPENTIN [Suspect]
     Active Substance: GABAPENTIN

REACTIONS (1)
  - Overdose [Unknown]
